FAERS Safety Report 16146081 (Version 1)
Quarter: 2019Q2

REPORT INFORMATION
  Report Type: Report from Study
  Country: IT (occurrence: IT)
  Receive Date: 20190402
  Receipt Date: 20190402
  Transmission Date: 20190711
  Serious: Yes (Hospitalization)
  Sender: FDA-Public Use
  Company Number: IT-ACCORD-117457

PATIENT
  Age: 48 Year
  Sex: Female

DRUGS (5)
  1. TAVOR (LORAZEPAM) [Suspect]
     Active Substance: LORAZEPAM
     Dosage: STRENGTH : 2.5 MG
     Route: 048
     Dates: start: 20181108, end: 20181108
  2. FELISON [Suspect]
     Active Substance: FLURAZEPAM MONOHYDROCHLORIDE
     Dosage: STRENGTH : 30 MG
     Route: 048
     Dates: start: 20181108, end: 20181108
  3. SEROQUEL [Suspect]
     Active Substance: QUETIAPINE FUMARATE
     Dosage: STRENGTH : 100 MG
     Route: 048
     Dates: start: 20181108, end: 20181108
  4. ZOLOFT [Suspect]
     Active Substance: SERTRALINE HYDROCHLORIDE
     Dosage: STRENGTH : 100 MG
     Route: 048
     Dates: start: 20181108, end: 20181108
  5. ESCITALOPRAM [Suspect]
     Active Substance: ESCITALOPRAM OXALATE
     Route: 048
     Dates: start: 20181108, end: 20181108

REACTIONS (5)
  - Suicide attempt [Unknown]
  - Loss of consciousness [Recovering/Resolving]
  - Drug abuse [Unknown]
  - Nuchal rigidity [Recovering/Resolving]
  - Pupillary reflex impaired [None]

NARRATIVE: CASE EVENT DATE: 20181108
